FAERS Safety Report 18866042 (Version 4)
Quarter: 2022Q1

REPORT INFORMATION
  Report Type: Spontaneous
  Country: US (occurrence: US)
  Receive Date: 20210208
  Receipt Date: 20220110
  Transmission Date: 20220423
  Serious: No
  Sender: FDA-Public Use
  Company Number: US-PFIZER INC-2021116601

PATIENT
  Age: 66 Year
  Sex: Female

DRUGS (1)
  1. XELJANZ XR [Suspect]
     Active Substance: TOFACITINIB CITRATE
     Indication: Rheumatoid arthritis
     Dosage: 11 MG, 1X/DAY
     Route: 048
     Dates: start: 202011

REACTIONS (5)
  - Nodule [Recovered/Resolved]
  - Pain in extremity [Recovered/Resolved]
  - Gout [Recovered/Resolved]
  - Depression [Recovered/Resolved]
  - Discouragement [Recovered/Resolved]

NARRATIVE: CASE EVENT DATE: 20201101
